FAERS Safety Report 16169495 (Version 1)
Quarter: 2019Q2

REPORT INFORMATION
  Report Type: Spontaneous
  Country: US (occurrence: US)
  Receive Date: 20190406
  Receipt Date: 20190406
  Transmission Date: 20190711
  Serious: Yes (Hospitalization)
  Sender: FDA-Public Use
  Company Number: None

PATIENT
  Age: 73 Year
  Sex: Male
  Weight: 67.4 kg

DRUGS (2)
  1. EMPAGLIFLOZIN [Suspect]
     Active Substance: EMPAGLIFLOZIN
     Indication: TYPE 2 DIABETES MELLITUS
     Dates: start: 20170217, end: 20190402
  2. GLIMIPERIDE [Concomitant]
     Active Substance: GLIMEPIRIDE
     Dates: start: 20170404

REACTIONS (4)
  - Pain in extremity [None]
  - Euglycaemic diabetic ketoacidosis [None]
  - Osteomyelitis [None]
  - Deep vein thrombosis [None]

NARRATIVE: CASE EVENT DATE: 20190404
